FAERS Safety Report 16291601 (Version 1)
Quarter: 2019Q2

REPORT INFORMATION
  Report Type: Spontaneous
  Country: US (occurrence: US)
  Receive Date: 20190509
  Receipt Date: 20190509
  Transmission Date: 20190711
  Serious: Yes (Hospitalization, Other)
  Sender: FDA-Public Use
  Company Number: US-PFIZER INC-2019191496

PATIENT
  Age: 65 Year
  Sex: Female
  Weight: 85.73 kg

DRUGS (5)
  1. LASIX [Suspect]
     Active Substance: FUROSEMIDE
     Indication: PULMONARY OEDEMA
     Dosage: 40 MG, 1X/DAY,(40MG TABLET ONE BY MOUTH A DAY)
     Route: 048
  2. XELJANZ XR [Suspect]
     Active Substance: TOFACITINIB CITRATE
     Indication: RHEUMATOID ARTHRITIS
     Dosage: 11 MG, 1X/DAY
     Dates: end: 20190329
  3. TUMS [Suspect]
     Active Substance: CALCIUM CARBONATE
     Dosage: 1000 MG, UNK,(1000MG, TAKING A HANDFUL AT A TIME )
  4. XELJANZ XR [Suspect]
     Active Substance: TOFACITINIB CITRATE
     Dosage: UNK
     Dates: start: 20190430
  5. LASIX [Suspect]
     Active Substance: FUROSEMIDE
     Indication: PULMONARY OEDEMA
     Dosage: UNK,(ADMINISTERED IV)
     Route: 042

REACTIONS (11)
  - Blood potassium decreased [Unknown]
  - Cough [Unknown]
  - Productive cough [Unknown]
  - Hiatus hernia [Unknown]
  - Aphonia [Unknown]
  - Fatigue [Unknown]
  - Pneumonia bacterial [Unknown]
  - Cardiac failure congestive [Unknown]
  - Vomiting [Unknown]
  - Dyspepsia [Unknown]
  - Blood calcium increased [Unknown]

NARRATIVE: CASE EVENT DATE: 201903
